FAERS Safety Report 6650140-1 (Version None)
Quarter: 2010Q1

REPORT INFORMATION
  Report Type: 
  Country: None (occurrence: None)
  Receive Date: 20100325
  Receipt Date: 20100317
  Transmission Date: 20100710
  Serious: Yes (Hospitalization)
  Sender: FDA-Public Use
  Company Number: NZ-ASTRAZENECA-2010SE11824

PATIENT
  Age: 14328 Day
  Sex: Male

DRUGS (5)
  1. QUETIAPINE [Suspect]
     Route: 048
     Dates: start: 20070531, end: 20070623
  2. CLOZAPINE [Interacting]
     Indication: PSYCHOTIC DISORDER
     Dates: start: 20070607, end: 20070616
  3. OLANZAPINE [Concomitant]
     Indication: SCHIZOAFFECTIVE DISORDER
     Route: 048
     Dates: start: 20070527, end: 20070613
  4. CITALOPRAM HYDROBROMIDE [Concomitant]
     Indication: SCHIZOAFFECTIVE DISORDER DEPRESSIVE TYPE
     Route: 048
     Dates: start: 20070529
  5. ZOPICLONE [Concomitant]
     Indication: SLEEP DISORDER
     Route: 048
     Dates: start: 20070607

REACTIONS (2)
  - DRUG INTERACTION [None]
  - MYOCARDITIS [None]
